FAERS Safety Report 15703469 (Version 2)
Quarter: 2019Q1

REPORT INFORMATION
  Report Type: Spontaneous
  Country: US (occurrence: US)
  Receive Date: 20181210
  Receipt Date: 20190327
  Transmission Date: 20190417
  Serious: No
  Sender: FDA-Public Use
  Company Number: US-PFIZER INC-2018213426

PATIENT
  Age: 86 Year
  Sex: Male
  Weight: 83 kg

DRUGS (1)
  1. IBRANCE [Suspect]
     Active Substance: PALBOCICLIB
     Indication: BREAST CANCER MALE
     Dosage: 125 MG, CYCLIC [ONCE DAILY FOR 21 DAYS AND OFF FOR 7]
     Route: 048
     Dates: start: 201806, end: 201810

REACTIONS (2)
  - Neoplasm progression [Unknown]
  - Product use issue [Unknown]

NARRATIVE: CASE EVENT DATE: 2018
